FAERS Safety Report 7584137-4 (Version None)
Quarter: 2011Q2

REPORT INFORMATION
  Report Type: 
  Country: None (occurrence: None)
  Receive Date: 20110630
  Receipt Date: 20110627
  Transmission Date: 20111010
  Serious: Yes (Hospitalization, Other)
  Sender: FDA-Public Use
  Company Number: US-PFIZER INC-2011143077

PATIENT
  Sex: Female
  Weight: 109 kg

DRUGS (2)
  1. LYRICA [Suspect]
     Indication: FIBROMYALGIA
     Dosage: UNK
     Route: 048
     Dates: start: 20090101, end: 20090101
  2. SYNTHROID [Concomitant]
     Indication: THYROID DISORDER
     Dosage: UNK
     Route: 048

REACTIONS (5)
  - CONVULSION [None]
  - HYPERTENSION [None]
  - AGGRESSION [None]
  - ARTHRALGIA [None]
  - MEMORY IMPAIRMENT [None]
